FAERS Safety Report 4738411-7 (Version None)
Quarter: 2005Q3

REPORT INFORMATION
  Report Type: 
  Country: None (occurrence: None)
  Receive Date: 20050809
  Receipt Date: 20050802
  Transmission Date: 20060218
  Serious: Yes (Other)
  Sender: FDA-Public Use
  Company Number: AU-GLAXOSMITHKLINE-B0390060A

PATIENT
  Sex: Female

DRUGS (1)
  1. ZYBAN [Suspect]
     Indication: DRUG USE FOR UNKNOWN INDICATION
     Route: 065
     Dates: start: 20050727

REACTIONS (6)
  - ELECTRIC SHOCK [None]
  - HYPERVIGILANCE [None]
  - MIDDLE INSOMNIA [None]
  - SHOCK [None]
  - TINNITUS [None]
  - TREMOR [None]
